FAERS Safety Report 13957427 (Version 2)
Quarter: 2017Q3

REPORT INFORMATION
  Report Type: Report from Study
  Country: None (occurrence: US)
  Receive Date: 20170912
  Receipt Date: 20170929
  Transmission Date: 20171128
  Serious: Yes (Hospitalization)
  Sender: FDA-Public Use
  Company Number: US-ABBVIE-17K-163-2094779-00

PATIENT
  Sex: Female
  Weight: 72.64 kg

DRUGS (1)
  1. HUMIRA [Suspect]
     Active Substance: ADALIMUMAB
     Indication: CROHN^S DISEASE
     Route: 058
     Dates: start: 2008

REACTIONS (12)
  - Gastrointestinal polyp [Unknown]
  - Erythema [Recovered/Resolved]
  - Paraesthesia [Unknown]
  - Myocardial infarction [Unknown]
  - Hernia [Unknown]
  - Dyspnoea [Unknown]
  - Peripheral swelling [Unknown]
  - Joint warmth [Recovered/Resolved]
  - Paraesthesia [Recovered/Resolved]
  - Joint swelling [Recovered/Resolved]
  - Pulmonary mass [Unknown]
  - Stress [Unknown]

NARRATIVE: CASE EVENT DATE: 2014
